FAERS Safety Report 19243264 (Version 1)
Quarter: 2021Q2

REPORT INFORMATION
  Report Type: Spontaneous
  Country: US (occurrence: US)
  Receive Date: 20210511
  Receipt Date: 20210511
  Transmission Date: 20210717
  Serious: Yes (Hospitalization, Disabling, Other)
  Sender: FDA-Public Use
  Company Number: US-SA-2021SA152082

PATIENT
  Age: 55 Year
  Sex: Female

DRUGS (17)
  1. LEFLUNOMIDE. [Suspect]
     Active Substance: LEFLUNOMIDE
  2. CYANOCOBALAMIN. [Concomitant]
     Active Substance: CYANOCOBALAMIN
  3. QUETIAPINE FUMARATE. [Concomitant]
     Active Substance: QUETIAPINE FUMARATE
     Indication: INSOMNIA
  4. CYCLOBENZAPRINE. [Concomitant]
     Active Substance: CYCLOBENZAPRINE
     Indication: MUSCLE SPASMS
  5. LOVASTATIN. [Concomitant]
     Active Substance: LOVASTATIN
     Indication: BLOOD CHOLESTEROL INCREASED
  6. HUMIRA [Suspect]
     Active Substance: ADALIMUMAB
     Indication: RHEUMATOID ARTHRITIS
     Dosage: (40 MG,1 IN 14 D)
     Route: 058
     Dates: start: 202001, end: 2020
  7. CYMBALTA [Concomitant]
     Active Substance: DULOXETINE HYDROCHLORIDE
     Indication: DEPRESSION
  8. POTASSIUM [Concomitant]
     Active Substance: POTASSIUM
     Indication: BLOOD POTASSIUM DECREASED
  9. CYMBALTA [Concomitant]
     Active Substance: DULOXETINE HYDROCHLORIDE
     Indication: FIBROMYALGIA
  10. GABAPENTIN. [Concomitant]
     Active Substance: GABAPENTIN
     Indication: FIBROMYALGIA
  11. VITAMIN D3 [Concomitant]
     Active Substance: CHOLECALCIFEROL
     Indication: VITAMIN D DECREASED
  12. PANTOPRAZOLE [Concomitant]
     Active Substance: PANTOPRAZOLE
     Indication: GASTROOESOPHAGEAL REFLUX DISEASE
  13. METHOTREXATE. [Suspect]
     Active Substance: METHOTREXATE
     Indication: RHEUMATOID ARTHRITIS
     Dosage: UNK
     Route: 048
  14. METHOTREXATE. [Suspect]
     Active Substance: METHOTREXATE
     Dosage: 4 DF, QW (EVERY FRIDAY (4 TABLET)
     Route: 048
     Dates: start: 202004
  15. HUMIRA [Suspect]
     Active Substance: ADALIMUMAB
     Dosage: 2.8571 MG (40 MG,1 IN 14 D)
     Route: 058
     Dates: start: 20200402, end: 202011
  16. HUMIRA [Suspect]
     Active Substance: ADALIMUMAB
     Dosage: (40 MG,1 IN 2 WK)
     Route: 058
     Dates: start: 20210128
  17. HYDROCHLOROTHIAZIDE. [Concomitant]
     Active Substance: HYDROCHLOROTHIAZIDE

REACTIONS (32)
  - Intervertebral disc degeneration [Unknown]
  - Discomfort [Unknown]
  - Staphylococcal skin infection [Unknown]
  - Hepatic enzyme increased [Recovered/Resolved]
  - Amnesia [Recovered/Resolved]
  - Intervertebral disc protrusion [Unknown]
  - Pain [Unknown]
  - Kidney infection [Recovered/Resolved]
  - Hepatic enzyme increased [Not Recovered/Not Resolved]
  - Staphylococcal infection [Unknown]
  - Back pain [Not Recovered/Not Resolved]
  - Pain [Not Recovered/Not Resolved]
  - Swelling [Not Recovered/Not Resolved]
  - Peripheral swelling [Not Recovered/Not Resolved]
  - Impaired self-care [Recovering/Resolving]
  - Anxiety [Recovered/Resolved]
  - Fibromyalgia [Unknown]
  - Oral mucosal eruption [Unknown]
  - Therapeutic response shortened [Unknown]
  - Gait disturbance [Recovered/Resolved]
  - Loss of personal independence in daily activities [Not Recovered/Not Resolved]
  - Coccydynia [Unknown]
  - Pain in extremity [Not Recovered/Not Resolved]
  - Renal impairment [Unknown]
  - Urinary tract infection [Unknown]
  - Renal disorder [Unknown]
  - Hepatic function abnormal [Unknown]
  - Abdominal hernia [Not Recovered/Not Resolved]
  - General physical condition abnormal [Unknown]
  - Musculoskeletal stiffness [Not Recovered/Not Resolved]
  - Rosacea [Not Recovered/Not Resolved]
  - Rheumatoid arthritis [Recovered/Resolved]

NARRATIVE: CASE EVENT DATE: 2020
